FAERS Safety Report 8155475-1 (Version None)
Quarter: 2012Q1

REPORT INFORMATION
  Report Type: 
  Country: None (occurrence: None)
  Receive Date: 20120222
  Receipt Date: 20120210
  Transmission Date: 20120608
  Serious: Yes (Other)
  Sender: FDA-Public Use
  Company Number: JP-ELI_LILLY_AND_COMPANY-JP201103004302

PATIENT
  Sex: Female

DRUGS (1)
  1. FORTEO [Suspect]
     Route: 058

REACTIONS (5)
  - NEOPLASM [None]
  - ASTHENIA [None]
  - OROPHARYNGEAL PAIN [None]
  - INJECTION SITE HAEMATOMA [None]
  - ADVERSE EVENT [None]
